FAERS Safety Report 21783808 (Version 1)
Quarter: 2022Q4

REPORT INFORMATION
  Report Type: Report from Study
  Country: US (occurrence: US)
  Receive Date: 20221227
  Receipt Date: 20221227
  Transmission Date: 20230112
  Serious: Yes (Hospitalization)
  Sender: FDA-Public Use
  Company Number: US-ABBVIE-4213039

PATIENT
  Sex: Female

DRUGS (1)
  1. HUMIRA [Suspect]
     Active Substance: ADALIMUMAB
     Indication: Product used for unknown indication
     Dosage: CITRATE FREE, STRENGTH 40
     Route: 058

REACTIONS (4)
  - Malaise [Unknown]
  - Urticaria [Unknown]
  - Abnormal behaviour [Unknown]
  - Haematochezia [Not Recovered/Not Resolved]
